FAERS Safety Report 16060603 (Version 1)
Quarter: 2019Q1

REPORT INFORMATION
  Report Type: Spontaneous
  Country: US (occurrence: US)
  Receive Date: 20190312
  Receipt Date: 20190312
  Transmission Date: 20190418
  Serious: Yes (Other)
  Sender: FDA-Public Use
  Company Number: US-ROCHE-2280595

PATIENT
  Sex: Male
  Weight: 64.56 kg

DRUGS (3)
  1. GAZYVA [Suspect]
     Active Substance: OBINUTUZUMAB
     Route: 042
     Dates: start: 20171020
  2. GAZYVA [Suspect]
     Active Substance: OBINUTUZUMAB
     Indication: CHRONIC LYMPHOCYTIC LEUKAEMIA
     Dosage: PART 1 OF LOADING (TEST) DOSE
     Route: 042
     Dates: start: 20171019
  3. GAZYVA [Suspect]
     Active Substance: OBINUTUZUMAB
     Dosage: TOTAL OF 12 1000MG DOSES
     Route: 042
     Dates: end: 20181025

REACTIONS (4)
  - Pleural effusion [Unknown]
  - Asthenia [Unknown]
  - Retinal tear [Unknown]
  - Anaemia [Unknown]
